FAERS Safety Report 6541037-6 (Version None)
Quarter: 2010Q1

REPORT INFORMATION
  Report Type: 
  Country: None (occurrence: None)
  Receive Date: 20100118
  Receipt Date: 20100112
  Transmission Date: 20100710
  Serious: Yes (Death, Hospitalization)
  Sender: FDA-Public Use
  Company Number: DE-ELI_LILLY_AND_COMPANY-DE200912000033

PATIENT
  Sex: Male
  Weight: 89 kg

DRUGS (5)
  1. ALIMTA [Suspect]
     Indication: NON-SMALL CELL LUNG CANCER
     Dosage: 760 MG, UNKNOWN
     Route: 065
     Dates: start: 20090609, end: 20090101
  2. CARBOPLATIN [Concomitant]
     Indication: NON-SMALL CELL LUNG CANCER
     Dosage: 340 MG, UNKNOWN
     Route: 042
  3. ASS [Concomitant]
     Dosage: UNK, UNKNOWN
     Route: 065
  4. VALORON [Concomitant]
     Dosage: UNK, UNKNOWN
     Route: 065
  5. PAMIDRONATE DISODIUM [Concomitant]
     Dosage: UNK, UNKNOWN
     Route: 065

REACTIONS (8)
  - BEDRIDDEN [None]
  - BLOOD CREATININE INCREASED [None]
  - BONE MARROW FAILURE [None]
  - FATIGUE [None]
  - HAEMATOTOXICITY [None]
  - MALNUTRITION [None]
  - NEUTROPENIC INFECTION [None]
  - THROMBOCYTOPENIA [None]
